FAERS Safety Report 6302963-6 (Version None)
Quarter: 2009Q3

REPORT INFORMATION
  Report Type: 
  Country: None (occurrence: None)
  Receive Date: 20090810
  Receipt Date: 20090803
  Transmission Date: 20100115
  Serious: Yes (Hospitalization)
  Sender: FDA-Public Use
  Company Number: B0587749A

PATIENT
  Sex: Male

DRUGS (2)
  1. AUGMENTIN '125' [Suspect]
     Route: 042
     Dates: start: 20090722, end: 20090722
  2. BUPIVACAINE HYDROCHLORIDE [Concomitant]
     Dosage: 6MG PER DAY
     Route: 042
     Dates: start: 20090722, end: 20090722

REACTIONS (4)
  - HYPOTENSION [None]
  - LACRIMATION INCREASED [None]
  - TONGUE OEDEMA [None]
  - URTICARIA [None]
